FAERS Safety Report 8949294 (Version 1)
Quarter: 2012Q4

REPORT INFORMATION
  Report Type: 
  Country: US (occurrence: US)
  Receive Date: 20121206
  Receipt Date: 20121206
  Transmission Date: 20130627
  Serious: No
  Sender: FDA-Public Use
  Company Number: US-PFIZER INC-2012305314

PATIENT
  Sex: Female

DRUGS (2)
  1. GABAPENTIN [Suspect]
     Indication: ANXIETY
     Dosage: 100 mg, 3x/day
     Dates: start: 20121204
  2. GABAPENTIN [Suspect]
     Indication: SLEEP DISORDER

REACTIONS (2)
  - Off label use [Unknown]
  - Drug ineffective for unapproved indication [Unknown]
